FAERS Safety Report 10430220 (Version 1)
Quarter: 2014Q3

REPORT INFORMATION
  Report Type: Spontaneous
  Country: AR (occurrence: None)
  Receive Date: 20140903
  Receipt Date: 20140903
  Transmission Date: 20150326
  Serious: Yes (Disabling, Other)
  Sender: FDA-Public Use
  Company Number: None

PATIENT
  Age: 26 Year
  Sex: Male
  Weight: 52 kg

DRUGS (1)
  1. CIPRO [Suspect]
     Active Substance: CIPROFLOXACIN HYDROCHLORIDE
     Indication: APPENDICECTOMY
     Dosage: 10    TWICE DAILY TAKEN BY MOUTH
     Route: 048
     Dates: start: 20140811, end: 20140815

REACTIONS (4)
  - Depression [None]
  - Feeling abnormal [None]
  - Erectile dysfunction [None]
  - Anxiety [None]

NARRATIVE: CASE EVENT DATE: 20140811
